FAERS Safety Report 15599543 (Version 2)
Quarter: 2019Q1

REPORT INFORMATION
  Report Type: Spontaneous
  Country: IT (occurrence: IT)
  Receive Date: 20181108
  Receipt Date: 20190206
  Transmission Date: 20190417
  Serious: Yes (Death)
  Sender: FDA-Public Use
  Company Number: IT-PFIZER INC-2018459994

PATIENT
  Age: 2 Month
  Sex: Male

DRUGS (1)
  1. SIROLIMUS. [Suspect]
     Active Substance: SIROLIMUS
     Indication: LYMPHANGIOMA
     Dosage: UNK

REACTIONS (11)
  - Cardiac arrest [Fatal]
  - Shock [Fatal]
  - Human herpes virus 6 serology [Fatal]
  - Hyperkalaemia [Fatal]
  - Pleural effusion [Fatal]
  - Haemoptysis [Fatal]
  - Anuria [Fatal]
  - Metabolic acidosis [Fatal]
  - Product use issue [Unknown]
  - Condition aggravated [Fatal]
  - Transaminases increased [Fatal]

NARRATIVE: CASE EVENT DATE: 20180701
